FAERS Safety Report 5332914-2 (Version None)
Quarter: 2007Q2

REPORT INFORMATION
  Report Type: 
  Country: None (occurrence: None)
  Receive Date: 20070521
  Receipt Date: 20070507
  Transmission Date: 20071010
  Serious: Yes (Hospitalization)
  Sender: FDA-Public Use
  Company Number: APP200700078

PATIENT
  Age: 15 Year
  Sex: Female

DRUGS (7)
  1. CEFUROXIME SODIUM [Suspect]
     Indication: PROPHYLAXIS
     Dosage: INTRAVENOUS
     Route: 042
  2. CEFUROXIME SODIUM [Suspect]
     Indication: SURGERY
     Dosage: INTRAVENOUS
     Route: 042
  3. PROMETHAZINE [Concomitant]
  4. ONDANSETRON HCL [Concomitant]
  5. IBUPROFEN [Concomitant]
  6. CIPROFLOXACIN [Concomitant]
  7. TRIMETHROPRIM-SULFAMETHOXAZOLE (BACTRIM / 00086101/) [Concomitant]

REACTIONS (9)
  - HAEMODIALYSIS [None]
  - HYPERSENSITIVITY [None]
  - KIDNEY ENLARGEMENT [None]
  - LYMPHOCYTE PERCENTAGE DECREASED [None]
  - METAMYELOCYTE PERCENTAGE INCREASED [None]
  - NEPHRITIS INTERSTITIAL [None]
  - NEUTROPHIL PERCENTAGE INCREASED [None]
  - RENAL FAILURE ACUTE [None]
  - URINARY TRACT INFECTION [None]
